FAERS Safety Report 24428398 (Version 4)
Quarter: 2025Q1

REPORT INFORMATION
  Report Type: Spontaneous
  Country: US (occurrence: US)
  Receive Date: 20241011
  Receipt Date: 20250324
  Transmission Date: 20250409
  Serious: Yes (Other)
  Sender: BRISTOL-MYERS SQUIBB COMPANY
  Company Number: US-BRISTOL-MYERS SQUIBB COMPANY-2024-153169

PATIENT
  Age: 84 Year
  Sex: Male
  Weight: 69.4 kg

DRUGS (2)
  1. REVLIMID [Suspect]
     Active Substance: LENALIDOMIDE
     Indication: Plasma cell myeloma
     Route: 048
  2. REVLIMID [Suspect]
     Active Substance: LENALIDOMIDE
     Dosage: EVERY OTHER DAY FOR 3 WEEKS, THEN 1 WEEK OFF
     Route: 048
     Dates: end: 202502

REACTIONS (10)
  - Confusional state [Not Recovered/Not Resolved]
  - Fatigue [Recovering/Resolving]
  - Weight decreased [Recovering/Resolving]
  - Off label use [Recovering/Resolving]
  - Herpes zoster [Recovering/Resolving]
  - Restlessness [Unknown]
  - Sleep talking [Unknown]
  - Somnolence [Unknown]
  - Spinal fracture [Recovering/Resolving]
  - Therapy interrupted [Unknown]
